FAERS Safety Report 18096351 (Version 2)
Quarter: 2020Q3

REPORT INFORMATION
  Report Type: Spontaneous
  Country: JP (occurrence: JP)
  Receive Date: 20200731
  Receipt Date: 20200907
  Transmission Date: 20201103
  Serious: Yes (Hospitalization)
  Sender: FDA-Public Use
  Company Number: JP-BAUSCH-BL-2020-021784

PATIENT
  Age: 30 Year
  Sex: Female

DRUGS (3)
  1. LOCOID [Suspect]
     Active Substance: HYDROCORTISONE BUTYRATE
     Indication: ACNE
     Route: 061
     Dates: start: 20200716
  2. CORECTIM [Suspect]
     Active Substance: DELGOCITINIB
     Indication: DERMATITIS ATOPIC
     Route: 061
     Dates: start: 20200707
  3. ACUATIM [Concomitant]
     Active Substance: NADIFLOXACIN
     Indication: PRODUCT USED FOR UNKNOWN INDICATION
     Route: 061
     Dates: start: 20200716

REACTIONS (1)
  - Kaposi^s varicelliform eruption [Recovered/Resolved]

NARRATIVE: CASE EVENT DATE: 20200716
